FAERS Safety Report 10891131 (Version 3)
Quarter: 2015Q1

REPORT INFORMATION
  Report Type: Spontaneous
  Country: US (occurrence: US)
  Receive Date: 20150305
  Receipt Date: 20150331
  Transmission Date: 20150721
  Serious: Yes (Hospitalization, Other)
  Sender: FDA-Public Use
  Company Number: US-UNITED THERAPEUTICS-UNT-2014-012982

PATIENT
  Age: 73 Year
  Sex: Female
  Weight: 74.83 kg

DRUGS (6)
  1. REMODULIN [Suspect]
     Active Substance: TREPROSTINIL
     Indication: PULMONARY ARTERIAL HYPERTENSION
     Dosage: 0.075 ?G/KG, CONTINUING
     Route: 058
     Dates: start: 20120914
  2. ADCIRCA [Concomitant]
     Active Substance: TADALAFIL
     Indication: PRODUCT USED FOR UNKNOWN INDICATION
  3. REMODULIN [Suspect]
     Active Substance: TREPROSTINIL
     Dosage: 0.075 ?G/KG, CONTINUING
     Route: 058
     Dates: start: 20131217
  4. REMODULIN [Suspect]
     Active Substance: TREPROSTINIL
     Dosage: 0.075 ?G/KG, CONTINUING
     Route: 058
     Dates: start: 20120918
  5. REMODULIN [Suspect]
     Active Substance: TREPROSTINIL
     Dosage: 0.0816 ?G/KG, CONTINUING
     Route: 058
     Dates: start: 20131211
  6. REMODULIN [Suspect]
     Active Substance: TREPROSTINIL
     Dosage: 0.075 ?G/KG, CONTINUING
     Route: 058
     Dates: start: 20131217

REACTIONS (7)
  - Tremor [Unknown]
  - Asthenia [Unknown]
  - Infusion site pain [Unknown]
  - Pneumonia [Unknown]
  - Infusion site infection [Unknown]
  - Fall [Unknown]
  - Pruritus generalised [Unknown]

NARRATIVE: CASE EVENT DATE: 2014
